FAERS Safety Report 4837140-9 (Version None)
Quarter: 2005Q4

REPORT INFORMATION
  Report Type: 
  Country: None (occurrence: None)
  Receive Date: 20051122
  Receipt Date: 20051114
  Transmission Date: 20060501
  Serious: Yes (Disabling)
  Sender: FDA-Public Use
  Company Number: DEWYE136814NOV05

PATIENT
  Age: 74 Year
  Sex: Male

DRUGS (19)
  1. VENLAFAXINE HCL [Suspect]
     Dosage: INCREASING DOSES UP TO 375 MG PER DAY, SEE IMAGE
     Route: 048
     Dates: start: 20040901, end: 20050113
  2. VENLAFAXINE HCL [Suspect]
     Dosage: INCREASING DOSES UP TO 375 MG PER DAY, SEE IMAGE
     Route: 048
     Dates: start: 20050114, end: 20050313
  3. VENLAFAXINE HCL [Suspect]
     Dosage: INCREASING DOSES UP TO 375 MG PER DAY, SEE IMAGE
     Route: 048
     Dates: start: 20050314, end: 20050314
  4. VENLAFAXINE HCL [Suspect]
     Dosage: INCREASING DOSES UP TO 375 MG PER DAY, SEE IMAGE
     Route: 048
     Dates: start: 20050315, end: 20050315
  5. VENLAFAXINE HCL [Suspect]
     Dosage: INCREASING DOSES UP TO 375 MG PER DAY, SEE IMAGE
     Route: 048
     Dates: start: 20050316, end: 20050317
  6. VENLAFAXINE HCL [Suspect]
     Dosage: INCREASING DOSES UP TO 375 MG PER DAY, SEE IMAGE
     Route: 048
     Dates: start: 20050318, end: 20050323
  7. DIPIPERON (PIPAMPERONE) [Suspect]
     Dosage: 120 MG PER DAY
     Route: 048
     Dates: start: 20050126
  8. MAPROTILINE [Suspect]
     Dosage: 25 MG PER DAY, 50 MG PER DAY, 75 MG PER DAY
     Route: 048
     Dates: start: 20050318, end: 20050318
  9. MAPROTILINE [Suspect]
     Dosage: 25 MG PER DAY, 50 MG PER DAY, 75 MG PER DAY
     Route: 048
     Dates: start: 20050319, end: 20050319
  10. MAPROTILINE [Suspect]
     Dosage: 25 MG PER DAY, 50 MG PER DAY, 75 MG PER DAY
     Route: 048
     Dates: start: 20050320, end: 20050331
  11. MIRTAZAPINE [Suspect]
     Dosage: 60 MG PER DAY, 45 MG PER DAY
     Route: 048
     Dates: end: 20050323
  12. MIRTAZAPINE [Suspect]
     Dosage: 60 MG PER DAY, 45 MG PER DAY
     Route: 048
     Dates: start: 20050324
  13. ZOPICLONE (ZOPICLONE) [Concomitant]
  14. DIOVAN HCT [Concomitant]
  15. DIOVAN [Concomitant]
  16. CARVEDILOL [Concomitant]
  17. RAMIPRIL [Concomitant]
  18. NITREPRESS (NITRENDIPINE) [Concomitant]
  19. PANTOPRAZOLE SODIUM [Concomitant]

REACTIONS (7)
  - BRADYCARDIA [None]
  - DIZZINESS [None]
  - DRUG INTERACTION [None]
  - ELECTROENCEPHALOGRAM ABNORMAL [None]
  - NERVOUS SYSTEM DISORDER [None]
  - SYNCOPE [None]
  - TENDON RUPTURE [None]
